FAERS Safety Report 4954086-6 (Version None)
Quarter: 2006Q1

REPORT INFORMATION
  Report Type: 
  Country: None (occurrence: None)
  Receive Date: 20060327
  Receipt Date: 20030227
  Transmission Date: 20060701
  Serious: Yes (Life-Threatening, Hospitalization)
  Sender: FDA-Public Use
  Company Number: CH-GLAXOSMITHKLINE-B0293945A

PATIENT
  Sex: Female
  Weight: 54 kg

DRUGS (8)
  1. COMBIVIR [Suspect]
     Indication: HIV INFECTION
     Dosage: 150MG TWICE PER DAY
     Dates: start: 20020901, end: 20030201
  2. KALETRA [Concomitant]
     Indication: HIV INFECTION
     Route: 048
     Dates: start: 20010101
  3. DIPIPERON [Concomitant]
     Dosage: 40MG PER DAY
     Route: 048
     Dates: start: 20010101
  4. CITALOPRAM HYDROBROMIDE [Concomitant]
     Dosage: 20MG FOUR TIMES PER DAY
     Route: 048
  5. TORSEMIDE [Concomitant]
     Dosage: 5MG PER DAY
     Route: 048
     Dates: start: 20021101
  6. METHADONE HCL [Concomitant]
     Dosage: 130MG PER DAY
     Route: 048
     Dates: start: 20020901
  7. BACTRIM [Concomitant]
     Route: 065
  8. TENOFOVIR [Concomitant]
     Indication: HIV INFECTION
     Route: 065

REACTIONS (10)
  - ANAEMIA MACROCYTIC [None]
  - APLASIA PURE RED CELL [None]
  - BLOOD ERYTHROPOIETIN INCREASED [None]
  - DYSPNOEA EXERTIONAL [None]
  - HAEMOGLOBIN DECREASED [None]
  - HYPOPLASTIC ANAEMIA [None]
  - LEUKOPENIA [None]
  - OEDEMA PERIPHERAL [None]
  - PALLOR [None]
  - RETICULOCYTOPENIA [None]
